FAERS Safety Report 7192378 (Version 2)
Quarter: 2013Q2

REPORT INFORMATION
  Report Type: Spontaneous
  Country: CA (occurrence: CA)
  Receive Date: 20091130
  Receipt Date: 20130410
  Transmission Date: 20140414
  Serious: Yes (Other)
  Sender: FDA-Public Use
  Company Number: PHHY2009CA51156

PATIENT
  Sex: Female

DRUGS (2)
  1. SANDOSTATIN LAR [Suspect]
     Indication: NEUROENDOCRINE TUMOUR
     Dosage: 30 MG, EVERY 4 WEEKS
     Route: 030
     Dates: start: 20091111
  2. SANDOSTATIN [Suspect]
     Dosage: UNK UKN, UNK
     Route: 058
     Dates: start: 200910, end: 20091123

REACTIONS (1)
  - Liver disorder [Recovered/Resolved]
